FAERS Safety Report 17708239 (Version 1)
Quarter: 2020Q2

REPORT INFORMATION
  Report Type: Spontaneous
  Country: US (occurrence: US)
  Receive Date: 20200425
  Receipt Date: 20200425
  Transmission Date: 20200714
  Serious: No
  Sender: FDA-Public Use
  Company Number: US-TEVA-2020-US-1225564

PATIENT
  Sex: Female
  Weight: 83.46 kg

DRUGS (6)
  1. FLUTICASONE PROPIONATE AND SALMETEROL [Suspect]
     Active Substance: FLUTICASONE PROPIONATE\SALMETEROL XINAFOATE
     Indication: EMPHYSEMA
     Dosage: 232 MCG/14 MCG; 1 PUFF TWICE DAILY
     Route: 045
     Dates: start: 201908
  2. VITAMINS [Concomitant]
     Active Substance: VITAMINS
  3. SIMVASTATIN. [Concomitant]
     Active Substance: SIMVASTATIN
  4. FLUTICASONE PROPIONATE AND SALMETEROL [Suspect]
     Active Substance: FLUTICASONE PROPIONATE\SALMETEROL XINAFOATE
     Indication: PULMONARY FUNCTION TEST DECREASED
  5. METOPROLOL. [Concomitant]
     Active Substance: METOPROLOL
  6. ESTRACE [Concomitant]
     Active Substance: ESTRADIOL

REACTIONS (5)
  - Fungal infection [Unknown]
  - Sinus headache [Recovering/Resolving]
  - Dry throat [Recovered/Resolved]
  - Dysphonia [Recovering/Resolving]
  - Oropharyngeal discomfort [Unknown]
